FAERS Safety Report 17410569 (Version 4)
Quarter: 2020Q2

REPORT INFORMATION
  Report Type: Report from Study
  Country: CO (occurrence: CO)
  Receive Date: 20200212
  Receipt Date: 20200408
  Transmission Date: 20200713
  Serious: Yes (Hospitalization, Other)
  Sender: FDA-Public Use
  Company Number: NVSC2020CO031042

PATIENT
  Sex: Male
  Weight: 54 kg

DRUGS (1)
  1. VOTRIENT [Suspect]
     Active Substance: PAZOPANIB HYDROCHLORIDE
     Indication: METASTATIC RENAL CELL CARCINOMA
     Dosage: 400 MG, QD
     Route: 048
     Dates: start: 202001, end: 202001

REACTIONS (8)
  - Abdominal tenderness [Unknown]
  - Decreased appetite [Unknown]
  - Gastritis [Unknown]
  - Weight decreased [Unknown]
  - Haemorrhage [Unknown]
  - Chronic kidney disease [Unknown]
  - Diverticulitis [Unknown]
  - Haemorrhoids [Unknown]
